FAERS Safety Report 4955828-6 (Version None)
Quarter: 2006Q1

REPORT INFORMATION
  Report Type: 
  Country: None (occurrence: None)
  Receive Date: 20060327
  Receipt Date: 20060327
  Transmission Date: 20060701
  Serious: Yes (Other)
  Sender: FDA-Public Use
  Company Number: None

PATIENT
  Age: 4 Year
  Sex: Male
  Weight: 18.5975 kg

DRUGS (1)
  1. ZYRTEC [Suspect]
     Indication: SEASONAL ALLERGY
     Dosage: 1 TO 2 TSP DAILY PO
     Route: 048
     Dates: start: 20060302, end: 20060322

REACTIONS (12)
  - ABDOMINAL PAIN [None]
  - ABNORMAL BEHAVIOUR [None]
  - ACTIVITIES OF DAILY LIVING IMPAIRED [None]
  - AGGRESSION [None]
  - ANGER [None]
  - ASTHENIA [None]
  - CRYING [None]
  - IRRITABILITY [None]
  - PARAESTHESIA [None]
  - PRURITUS [None]
  - PSYCHIATRIC SYMPTOM [None]
  - VERBAL ABUSE [None]
